FAERS Safety Report 10949714 (Version 2)
Quarter: 2015Q2

REPORT INFORMATION
  Report Type: Spontaneous
  Country: US (occurrence: US)
  Receive Date: 20150324
  Receipt Date: 20150525
  Transmission Date: 20150821
  Serious: No
  Sender: FDA-Public Use
  Company Number: US-JNJFOC-20130401731

PATIENT
  Sex: Male

DRUGS (2)
  1. RISPERDAL [Suspect]
     Active Substance: RISPERIDONE
     Indication: POST-TRAUMATIC STRESS DISORDER
     Dosage: HALF TABLETS TWICE A DAY FOR 30 DAYS.
     Route: 048
     Dates: start: 20041201, end: 20051202
  2. RISPERDAL [Suspect]
     Active Substance: RISPERIDONE
     Indication: PSYCHOTIC DISORDER
     Dosage: HALF TABLETS TWICE A DAY FOR 30 DAYS.
     Route: 048
     Dates: start: 20041201, end: 20051202

REACTIONS (2)
  - Anxiety [Unknown]
  - Gynaecomastia [Unknown]
